FAERS Safety Report 12226806 (Version 1)
Quarter: 2016Q1

REPORT INFORMATION
  Report Type: Other
  Country: GB (occurrence: GB)
  Receive Date: 20160331
  Receipt Date: 20160331
  Transmission Date: 20160526
  Serious: Yes (Life-Threatening, Hospitalization, Other)
  Sender: FDA-Public Use
  Company Number: GB-MYLANLABS-2016M1012649

PATIENT

DRUGS (7)
  1. CITALOPRAM [Suspect]
     Active Substance: CITALOPRAM HYDROBROMIDE
     Indication: LIMITED SYMPTOM PANIC ATTACK
     Dosage: 20 MG, UNK
     Route: 048
  2. MIRTAZAPINE. [Suspect]
     Active Substance: MIRTAZAPINE
     Indication: LIMITED SYMPTOM PANIC ATTACK
     Dosage: 15 MG, UNK (FOR APROXIMATELY 6 MONTHS)
     Route: 048
     Dates: end: 20151226
  3. AMLODIPINE [Concomitant]
     Active Substance: AMLODIPINE BESYLATE
     Dosage: 5 MG, UNK
  4. CODEINE PHOSPHATE [Concomitant]
     Active Substance: CODEINE PHOSPHATE
     Dosage: UNK
  5. PROPRANOLOL [Concomitant]
     Active Substance: PROPRANOLOL\PROPRANOLOL HYDROCHLORIDE
     Dosage: 40 MG, UNK (FOR APROXIMATELY 6 MONTHS. STOPPED 4 WEEKS AGO)
  6. ST JOHNS WORT [Concomitant]
     Active Substance: ST. JOHN^S WORT
     Dosage: UNK
  7. VITAMIN D3 [Concomitant]
     Active Substance: CHOLECALCIFEROL
     Dosage: UNK

REACTIONS (23)
  - Serotonin syndrome [Recovered/Resolved]
  - Heart rate increased [Not Recovered/Not Resolved]
  - Dyspnoea [Recovered/Resolved]
  - Anxiety [Recovered/Resolved with Sequelae]
  - Dizziness [Recovering/Resolving]
  - Incoherent [Unknown]
  - Musculoskeletal stiffness [Recovered/Resolved]
  - Diarrhoea [Not Recovered/Not Resolved]
  - Abnormal weight gain [Recovered/Resolved with Sequelae]
  - Feeling abnormal [Unknown]
  - Dry mouth [Not Recovered/Not Resolved]
  - Fatigue [Recovering/Resolving]
  - Depersonalisation/derealisation disorder [Recovered/Resolved]
  - Pruritus generalised [Recovering/Resolving]
  - Gingival pain [Not Recovered/Not Resolved]
  - Dyskinesia [Unknown]
  - Dysstasia [Unknown]
  - Screaming [Unknown]
  - Gait disturbance [Unknown]
  - Suicidal ideation [Unknown]
  - Tremor [Not Recovered/Not Resolved]
  - Paraesthesia [Not Recovered/Not Resolved]
  - Pain in jaw [Not Recovered/Not Resolved]
